FAERS Safety Report 20016693 (Version 1)
Quarter: 2021Q4

REPORT INFORMATION
  Report Type: Spontaneous
  Country: US (occurrence: None)
  Receive Date: 20211104
  Receipt Date: 20211104
  Transmission Date: 20220303
  Serious: Yes (Hospitalization, Other)
  Sender: FDA-Public Use
  Company Number: None

PATIENT
  Age: 31 Year
  Sex: Female
  Weight: 134.26 kg

DRUGS (5)
  1. ABILIFY [Suspect]
     Active Substance: ARIPIPRAZOLE
  2. LEXAPRO [Suspect]
     Active Substance: ESCITALOPRAM OXALATE
  3. KEPPRA XR [Suspect]
     Active Substance: LEVETIRACETAM
  4. OMEPRAZOLE [Concomitant]
  5. CLINDAMYCIN [Concomitant]
     Active Substance: CLINDAMYCIN

REACTIONS (5)
  - Seizure [None]
  - Maternal exposure timing unspecified [None]
  - Maternal drugs affecting foetus [None]
  - Caesarean section [None]
  - Foetal heart rate abnormal [None]

NARRATIVE: CASE EVENT DATE: 20190910
